FAERS Safety Report 8447833-2 (Version None)
Quarter: 2012Q2

REPORT INFORMATION
  Report Type: 
  Country: None (occurrence: None)
  Receive Date: 20120619
  Receipt Date: 20120605
  Transmission Date: 20120825
  Serious: Yes (Life-Threatening, Hospitalization)
  Sender: FDA-Public Use
  Company Number: US-BAYER-2012-056062

PATIENT

DRUGS (13)
  1. ANAGRELIDE HCL [Suspect]
  2. SPIRIVA [Suspect]
  3. CLINDAMYCIN [Suspect]
  4. BUSULFAN [Suspect]
  5. FUROSEMIDE [Suspect]
  6. ASPIRIN [Suspect]
  7. HYDROXYUREA [Suspect]
  8. VERAPAMIL [Suspect]
  9. ESIDRIX [Suspect]
  10. FLUTICASONE PROPIONATE/SALMETEROL [Suspect]
  11. RAMIPRIL [Suspect]
  12. SEREVENT [Suspect]
  13. NOVALGIN [Suspect]

REACTIONS (5)
  - LEUKOPENIA [None]
  - ERYTHROPENIA [None]
  - ANAEMIA [None]
  - THROMBOCYTOPENIA [None]
  - PANCYTOPENIA [None]
